FAERS Safety Report 8269053-7 (Version None)
Quarter: 2012Q2

REPORT INFORMATION
  Report Type: 
  Country: None (occurrence: None)
  Receive Date: 20120409
  Receipt Date: 20120402
  Transmission Date: 20120825
  Serious: Yes (Disabling)
  Sender: FDA-Public Use
  Company Number: US-PFIZER INC-2011055333

PATIENT
  Sex: Male
  Weight: 91.156 kg

DRUGS (11)
  1. LYRICA [Suspect]
     Indication: NERVE INJURY
     Dosage: 150 MG, 3X/DAY
  2. LYRICA [Suspect]
     Indication: FIBROMYALGIA
  3. OXYCODONE HCL [Suspect]
     Indication: SCIATICA
     Dosage: UNK
  4. TRAZODONE [Concomitant]
     Indication: MOOD SWINGS
     Dosage: 600 MG IN THE MORNING, 1200 MG AT NIGHT
  5. XANAX [Concomitant]
     Indication: ANXIETY
     Dosage: 5 MG, 2X/DAY
     Route: 048
  6. SEROQUEL [Concomitant]
     Dosage: UNK
  7. LYRICA [Suspect]
     Indication: PAIN
     Dosage: 75 MG, 3X/DAY
     Route: 048
     Dates: start: 20070101
  8. TRILEPTAL [Concomitant]
     Indication: MOOD SWINGS
     Dosage: 300 MG, DAILY
  9. FENTANYL [Suspect]
     Indication: SCIATICA
     Dosage: UNK
  10. LITHIUM [Concomitant]
     Dosage: UNK
  11. PROZAC [Concomitant]
     Dosage: UNK

REACTIONS (8)
  - DRUG INEFFECTIVE [None]
  - IRRITABILITY [None]
  - PAIN [None]
  - FEELING ABNORMAL [None]
  - WEIGHT INCREASED [None]
  - GAIT DISTURBANCE [None]
  - MUSCULOSKELETAL STIFFNESS [None]
  - MUSCLE SPASMS [None]
